FAERS Safety Report 25483585 (Version 1)
Quarter: 2025Q2

REPORT INFORMATION
  Report Type: Spontaneous
  Country: US (occurrence: US)
  Receive Date: 20250626
  Receipt Date: 20250626
  Transmission Date: 20250717
  Serious: Yes (Other)
  Sender: TORRENT PHARMA INC.
  Company Number: US-MLMSERVICE-20250611-PI540772-00295-2

PATIENT
  Age: 31 Year
  Sex: Male

DRUGS (7)
  1. RISPERIDONE [Interacting]
     Active Substance: RISPERIDONE
     Indication: Delusion
     Route: 065
  2. CLONAZEPAM [Interacting]
     Active Substance: CLONAZEPAM
     Indication: Anxiety
     Dosage: AM
     Route: 065
  3. CLONIDINE [Interacting]
     Active Substance: CLONIDINE
     Indication: Anxiety
     Dosage: AT DINNER TIME
     Route: 065
  4. MODAFINIL [Interacting]
     Active Substance: MODAFINIL
     Indication: Somnolence
     Dosage: AM
     Route: 065
  5. SERTRALINE [Interacting]
     Active Substance: SERTRALINE HYDROCHLORIDE
     Indication: Anxiety
     Dosage: DOSE WAS INCREASED EVERY OTHER MONTH TO A DOSE OF 200 MG/DAY
     Route: 065
  6. VALPROIC ACID [Interacting]
     Active Substance: VALPROIC ACID
     Indication: Aggression
     Route: 065
  7. LITHIUM [Concomitant]
     Active Substance: LITHIUM
     Indication: Aggression
     Route: 065

REACTIONS (4)
  - Affective disorder [Recovering/Resolving]
  - Behaviour disorder [Recovering/Resolving]
  - Drug interaction [Recovering/Resolving]
  - Condition aggravated [Recovering/Resolving]
